FAERS Safety Report 4848645-9 (Version None)
Quarter: 2005Q4

REPORT INFORMATION
  Report Type: 
  Country: None (occurrence: None)
  Receive Date: 20051206
  Receipt Date: 20051123
  Transmission Date: 20060501
  Serious: Yes (Other)
  Sender: FDA-Public Use
  Company Number: 2005160554

PATIENT
  Age: 61 Year
  Sex: Female
  Weight: 64.5 kg

DRUGS (5)
  1. TOLTERODINE TARTRATE [Suspect]
     Indication: URINARY INCONTINENCE
     Dosage: (4 MG) ORAL
     Route: 048
     Dates: start: 20050810, end: 20050824
  2. AMLODIPINE [Concomitant]
  3. CLIMAVAL (ESTRADIOL VALERATE) [Concomitant]
  4. DICLOFENAC SODIUM [Concomitant]
  5. ACETAMINOPHEN W/ CODEINE [Concomitant]

REACTIONS (6)
  - HEADACHE [None]
  - JOINT SWELLING [None]
  - MENTAL IMPAIRMENT [None]
  - NAUSEA [None]
  - SOMNOLENCE [None]
  - STOMACH DISCOMFORT [None]
